FAERS Safety Report 24646791 (Version 1)
Quarter: 2024Q4

REPORT INFORMATION
  Report Type: Spontaneous
  Country: NL (occurrence: NL)
  Receive Date: 20241121
  Receipt Date: 20241121
  Transmission Date: 20250115
  Serious: Yes (Hospitalization)
  Sender: TEVA
  Company Number: None

PATIENT
  Age: 71 Year
  Sex: Female
  Weight: 92 kg

DRUGS (1)
  1. METOPROLOL [Suspect]
     Active Substance: METOPROLOL
     Indication: Atrial tachycardia
     Dosage: 1X / DAY 1 PIECE. TABLET MGA (SUCCINATE) / BRAND NAME NOT SPECIFIED
     Route: 048
     Dates: start: 20220101, end: 20240517

REACTIONS (2)
  - Bradycardia [Recovered/Resolved]
  - Sinus node dysfunction [Recovered/Resolved]
